FAERS Safety Report 21763046 (Version 1)
Quarter: 2022Q4

REPORT INFORMATION
  Report Type: Spontaneous
  Country: CN (occurrence: CN)
  Receive Date: 20221221
  Receipt Date: 20221221
  Transmission Date: 20230113
  Serious: Yes (Hospitalization, Other)
  Sender: FDA-Public Use
  Company Number: CN-PFIZER INC-PV202200126545

PATIENT
  Age: 62 Year
  Sex: Female
  Weight: 67 kg

DRUGS (3)
  1. MEDROL [Suspect]
     Active Substance: METHYLPREDNISOLONE
     Indication: Lupus-like syndrome
     Dosage: 2 MG, 1X/DAY
     Route: 048
     Dates: start: 20220630, end: 20220814
  2. MEDROL [Suspect]
     Active Substance: METHYLPREDNISOLONE
     Indication: Systemic lupus erythematosus
  3. HERBALS [Suspect]
     Active Substance: HERBALS
     Indication: Systemic lupus erythematosus
     Dosage: 20 MG, 3X/DAY
     Route: 048
     Dates: start: 20220630, end: 20220814

REACTIONS (5)
  - Anal incontinence [Recovering/Resolving]
  - Rash [Recovering/Resolving]
  - Arthralgia [Recovering/Resolving]
  - Drug hypersensitivity [Recovering/Resolving]
  - Dysbiosis [Recovering/Resolving]

NARRATIVE: CASE EVENT DATE: 20220101
